FAERS Safety Report 11649764 (Version 1)
Quarter: 2015Q4

REPORT INFORMATION
  Report Type: Spontaneous
  Country: US (occurrence: US)
  Receive Date: 20151021
  Receipt Date: 20151021
  Transmission Date: 20160304
  Serious: Yes (Hospitalization)
  Sender: FDA-Public Use
  Company Number: US-IPCA LABORATORIES LIMITED-IPC201510-000667

PATIENT
  Age: 51 Year
  Sex: Male

DRUGS (2)
  1. AMLODIPINE BESILATE [Suspect]
     Active Substance: AMLODIPINE BESYLATE
  2. METOPROLOL TARTRATE. [Suspect]
     Active Substance: METOPROLOL TARTRATE

REACTIONS (3)
  - Shock [Recovered/Resolved]
  - Cardiogenic shock [Recovered/Resolved]
  - Overdose [Unknown]
